FAERS Safety Report 5733182-X (Version None)
Quarter: 2008Q2

REPORT INFORMATION
  Report Type: 
  Country: None (occurrence: None)
  Receive Date: 20080507
  Receipt Date: 20080507
  Transmission Date: 20081010
  Serious: Yes (Hospitalization)
  Sender: FDA-Public Use
  Company Number: 2008PV000032

PATIENT
  Age: 56 Year
  Sex: Female

DRUGS (10)
  1. CYTARABINE [Suspect]
     Dosage: 50 MG; INTH
     Route: 037
     Dates: start: 20080327
  2. DEXAMETHASONE (CON.) [Concomitant]
  3. ESOMEPRAZOLE (CON.) [Concomitant]
  4. HYDROCHLOROTHIAZIDE (CON.) [Concomitant]
  5. TRIAMTEREN (CON.) [Concomitant]
  6. SIMVASTIN (CON.) [Concomitant]
  7. ESCITALOPRAM (CON.) [Concomitant]
  8. VINCRISTINE (CON.) [Concomitant]
  9. METHOTREXATE (CON.) [Concomitant]
  10. IFOSFAMIDE (CON.) [Concomitant]

REACTIONS (3)
  - BACK PAIN [None]
  - HYPOAESTHESIA [None]
  - INCONTINENCE [None]
